FAERS Safety Report 7822020-7 (Version None)
Quarter: 2011Q4

REPORT INFORMATION
  Report Type: 
  Country: None (occurrence: None)
  Receive Date: 20111018
  Receipt Date: 20111006
  Transmission Date: 20120403
  Serious: Yes (Other)
  Sender: FDA-Public Use
  Company Number: PHEH2011US06496

PATIENT
  Age: 40 Year
  Sex: Female

DRUGS (1)
  1. EXFORGE HCT [Suspect]
     Dosage: UNK,

REACTIONS (5)
  - DRESSLER'S SYNDROME [None]
  - BODY MASS INDEX INCREASED [None]
  - VISION BLURRED [None]
  - BLOOD PRESSURE INCREASED [None]
  - EYE PAIN [None]
